FAERS Safety Report 4980381-0 (Version None)
Quarter: 2006Q2

REPORT INFORMATION
  Report Type: 
  Country: None (occurrence: None)
  Receive Date: 20060421
  Receipt Date: 20060421
  Transmission Date: 20061013
  Serious: Yes (Death, Life-Threatening, Hospitalization)
  Sender: FDA-Public Use
  Company Number: None

PATIENT
  Age: 80 Year
  Sex: Female
  Weight: 55.3388 kg

DRUGS (1)
  1. ALLOPURINOL [Suspect]
     Indication: GOUT
     Dosage: 300MG   ONCE DAILY?   PO
     Route: 048
     Dates: start: 20060303, end: 20060401

REACTIONS (8)
  - DRUG HYPERSENSITIVITY [None]
  - HEPATIC FAILURE [None]
  - JAUNDICE [None]
  - PRURITUS [None]
  - PYREXIA [None]
  - RASH ERYTHEMATOUS [None]
  - RENAL FUNCTION TEST ABNORMAL [None]
  - TACHYCARDIA [None]
